FAERS Safety Report 20058647 (Version 1)
Quarter: 2021Q4

REPORT INFORMATION
  Report Type: Spontaneous
  Country: US (occurrence: None)
  Receive Date: 20211111
  Receipt Date: 20211111
  Transmission Date: 20220303
  Serious: Yes (Hospitalization)
  Sender: FDA-Public Use
  Company Number: None

PATIENT
  Sex: Female
  Weight: 125 kg

DRUGS (6)
  1. ONCASPAR [Suspect]
     Active Substance: PEGASPARGASE
  2. CYTARABINE [Suspect]
     Active Substance: CYTARABINE
     Dates: end: 20211019
  3. DAUNORUBICIN [Suspect]
     Active Substance: DAUNORUBICIN
     Dates: end: 20211103
  4. METHOTREXATE [Suspect]
     Active Substance: METHOTREXATE
     Dates: end: 20211027
  5. PREDNISOLONE [Suspect]
     Active Substance: PREDNISOLONE
     Dates: end: 20211107
  6. VINCRISTINE SULFATE [Suspect]
     Active Substance: VINCRISTINE SULFATE
     Dates: end: 20211103

REACTIONS (9)
  - Haemorrhagic stroke [None]
  - Hypoaesthesia [None]
  - Muscular weakness [None]
  - Muscular weakness [None]
  - Unresponsive to stimuli [None]
  - Seizure [None]
  - Superior sagittal sinus thrombosis [None]
  - Prothrombin time prolonged [None]
  - International normalised ratio decreased [None]

NARRATIVE: CASE EVENT DATE: 20211107
